FAERS Safety Report 20003142 (Version 2)
Quarter: 2021Q4

REPORT INFORMATION
  Report Type: Spontaneous
  Country: AU (occurrence: AU)
  Receive Date: 20211027
  Receipt Date: 20211220
  Transmission Date: 20220303
  Serious: Yes (Other)
  Sender: FDA-Public Use
  Company Number: AU-MYLANLABS-2021M1075698

PATIENT
  Sex: Male

DRUGS (1)
  1. CLOZARIL [Suspect]
     Active Substance: CLOZAPINE
     Indication: Schizophrenia
     Dosage: 500 MILLIGRAM
     Route: 048
     Dates: start: 20200324

REACTIONS (3)
  - Troponin abnormal [Unknown]
  - Ejection fraction abnormal [Unknown]
  - Cardiomyopathy [Unknown]
